FAERS Safety Report 15221841 (Version 1)
Quarter: 2018Q3

REPORT INFORMATION
  Report Type: Spontaneous
  Country: US (occurrence: US)
  Receive Date: 20180731
  Receipt Date: 20180731
  Transmission Date: 20181010
  Serious: Yes (Hospitalization)
  Sender: FDA-Public Use
  Company Number: US-VERTEX PHARMACEUTICALS-2018-005188

PATIENT
  Age: 39 Year
  Sex: Male

DRUGS (2)
  1. SYMDEKO [Suspect]
     Active Substance: IVACAFTOR\TEZACAFTOR
     Indication: CYSTIC FIBROSIS
     Dosage: 1 YELLOW TABLET (TEZACAFTOR 100MG /IVACAFTOR 150MG) AM AND 1 BLUE TABLET (IVACAFTOR 150MG) PM
     Route: 048
     Dates: start: 201803
  2. CAYSTON [Concomitant]
     Active Substance: AZTREONAM

REACTIONS (1)
  - Lung transplant [Unknown]

NARRATIVE: CASE EVENT DATE: 20180721
